FAERS Safety Report 7717791-4 (Version None)
Quarter: 2011Q3

REPORT INFORMATION
  Report Type: 
  Country: None (occurrence: None)
  Receive Date: 20110830
  Receipt Date: 20110823
  Transmission Date: 20111222
  Serious: Yes (Hospitalization)
  Sender: FDA-Public Use
  Company Number: GB-SANOFI-AVENTIS-2011SA051085

PATIENT
  Age: 67 Year
  Sex: Male
  Weight: 82.6 kg

DRUGS (3)
  1. ELOXATIN [Suspect]
     Route: 042
     Dates: start: 20100913
  2. IRINOTECAN HCL [Concomitant]
     Route: 042
     Dates: start: 20100913
  3. TEGAFUR/URACIL [Concomitant]
     Route: 042
     Dates: start: 20100913

REACTIONS (6)
  - MUSCLE TWITCHING [None]
  - PAIN [None]
  - INJECTION SITE EXTRAVASATION [None]
  - PERIPHERAL SENSORIMOTOR NEUROPATHY [None]
  - OEDEMA PERIPHERAL [None]
  - SENSORY LOSS [None]
